FAERS Safety Report 25451712 (Version 1)
Quarter: 2025Q2

REPORT INFORMATION
  Report Type: Spontaneous
  Country: US (occurrence: None)
  Receive Date: 20250617
  Receipt Date: 20250617
  Transmission Date: 20250716
  Serious: Yes (unspecified)
  Sender: FDA-CTU
  Company Number: None

PATIENT
  Age: 60 Year
  Sex: Female
  Weight: 87.75 kg

DRUGS (12)
  1. LEVOFLOXACIN [Suspect]
     Active Substance: LEVOFLOXACIN
     Indication: Tendon discomfort
     Route: 048
     Dates: start: 20250605, end: 20250611
  2. BACTRIM [Suspect]
     Active Substance: SULFAMETHOXAZOLE\TRIMETHOPRIM
  3. PREDNISONE [Concomitant]
     Active Substance: PREDNISONE
  4. HYDROXYCHLOROQUINE [Concomitant]
     Active Substance: HYDROXYCHLOROQUINE
  5. BUSPIRONE [Concomitant]
     Active Substance: BUSPIRONE HYDROCHLORIDE
  6. BUPROPION [Concomitant]
     Active Substance: BUPROPION
  7. QULIPTA [Concomitant]
     Active Substance: ATOGEPANT
  8. NORTRYPTILINE [Concomitant]
  9. QUIETAPINE [Concomitant]
  10. CLONAZEPAM [Concomitant]
     Active Substance: CLONAZEPAM
  11. LYRICA [Suspect]
     Active Substance: PREGABALIN
  12. FLLUOXETINE [Concomitant]

REACTIONS (5)
  - Tendon pain [None]
  - Tendon rupture [None]
  - Swelling [None]
  - Gait inability [None]
  - Contraindicated product administered [None]

NARRATIVE: CASE EVENT DATE: 20250608
